FAERS Safety Report 8359927-0 (Version None)
Quarter: 2012Q2

REPORT INFORMATION
  Report Type: 
  Country: None (occurrence: None)
  Receive Date: 20120515
  Receipt Date: 20120510
  Transmission Date: 20120825
  Serious: Yes (Other)
  Sender: FDA-Public Use
  Company Number: NL-PFIZER INC-2012116254

PATIENT
  Age: 88 Year
  Sex: Female

DRUGS (4)
  1. AMITRIPTYLINE [Concomitant]
  2. METHADONE [Concomitant]
  3. GABAPENTIN [Suspect]
     Dosage: 600 MG
  4. TEMAZEPAM [Concomitant]

REACTIONS (2)
  - OPEN WOUND [None]
  - LACERATION [None]
